FAERS Safety Report 8404958-5 (Version None)
Quarter: 2012Q2

REPORT INFORMATION
  Report Type: 
  Country: None (occurrence: None)
  Receive Date: 20120601
  Receipt Date: 20120528
  Transmission Date: 20120825
  Serious: Yes (Death, Hospitalization, Other)
  Sender: FDA-Public Use
  Company Number: NL-AMGEN-NLDSP2012033241

PATIENT
  Age: 57 Year
  Sex: Male

DRUGS (2)
  1. CINACALCET HYDROCHLORIDE [Suspect]
     Indication: PRODUCT USED FOR UNKNOWN INDICATION
     Dosage: 30 MG, BID
  2. CINACALCET HYDROCHLORIDE [Suspect]
     Dosage: 60 MG, BID

REACTIONS (3)
  - HYPOCALCAEMIA [None]
  - DEATH [None]
  - PARATHYROID HORMONE-RELATED PROTEIN ABNORMAL [None]
